FAERS Safety Report 6181060-7 (Version None)
Quarter: 2009Q2

REPORT INFORMATION
  Report Type: 
  Country: None (occurrence: None)
  Receive Date: 20090504
  Receipt Date: 20090504
  Transmission Date: 20091009
  Serious: Yes (Disabling)
  Sender: FDA-Public Use
  Company Number: None

PATIENT
  Age: 84 Year
  Sex: Male
  Weight: 80.7403 kg

DRUGS (15)
  1. GENTAMICIN SULFATE [Suspect]
     Indication: ENDOCARDITIS
     Dosage: 80 MG EVERY 12 HOURS, INTRAVENOUS DRIP
     Route: 041
     Dates: start: 20080201, end: 20080101
  2. GENTAMICIN SULFATE [Suspect]
     Indication: ENDOCARDITIS
     Dosage: 60 MG ( EVERY 12 HOURS ) INTRAVENOUS DRIP
     Route: 041
     Dates: start: 20080101, end: 20080301
  3. LOPRESSOR [Concomitant]
  4. AMPICILLIN [Concomitant]
  5. REMERON [Concomitant]
  6. (LACTOBACILLUS) [Concomitant]
  7. LEXAPRO [Concomitant]
  8. LISINOPRIL [Concomitant]
  9. NEXIUM [Concomitant]
  10. FLOMAX [Concomitant]
  11. AMOXICILLIN [Concomitant]
  12. COUMADIN [Concomitant]
  13. WELLBUTRIN XL [Concomitant]
  14. NAMENDA [Concomitant]
  15. (GLUCOSAMINE SULFATE W/CHONDROITIN [Concomitant]

REACTIONS (12)
  - AMNESIA [None]
  - BALANCE DISORDER [None]
  - DYSSTASIA [None]
  - FALL [None]
  - GAIT DISTURBANCE [None]
  - HYPOACUSIS [None]
  - INNER EAR DISORDER [None]
  - MALAISE [None]
  - MOBILITY DECREASED [None]
  - OTOTOXICITY [None]
  - PERFORMANCE STATUS DECREASED [None]
  - WALKING AID USER [None]
